FAERS Safety Report 8732858 (Version 2)
Quarter: 2012Q4

REPORT INFORMATION
  Report Type: 
  Country: CR (occurrence: CR)
  Receive Date: 20120820
  Receipt Date: 20120905
  Transmission Date: 20130627
  Serious: Yes (Other)
  Sender: FDA-Public Use
  Company Number: CR-PFIZER INC-2012200954

PATIENT
  Age: 64 Year
  Sex: Male

DRUGS (1)
  1. LIPITOR [Suspect]
     Dosage: 20 mg, UNK
     Dates: start: 201201, end: 20120615

REACTIONS (3)
  - Renal failure [Unknown]
  - Iron deficiency anaemia [Unknown]
  - Plasma cell myeloma [Unknown]
